FAERS Safety Report 19154944 (Version 3)
Quarter: 2021Q3

REPORT INFORMATION
  Report Type: Spontaneous
  Country: JP (occurrence: JP)
  Receive Date: 20210419
  Receipt Date: 20210709
  Transmission Date: 20211014
  Serious: Yes (Hospitalization)
  Sender: FDA-Public Use
  Company Number: JP-ELI_LILLY_AND_COMPANY-JP202104002608

PATIENT
  Age: 70 Year
  Sex: Female

DRUGS (9)
  1. L?CARBOCISTEINE [Concomitant]
     Active Substance: CARBOCYSTEINE
     Indication: LUNG ADENOCARCINOMA
     Dosage: 1500 MG, DAILY
     Route: 048
     Dates: start: 20191101
  2. PITAVASTATIN CALCIUM [Concomitant]
     Active Substance: PITAVASTATIN CALCIUM
     Indication: DYSLIPIDAEMIA
     Dosage: 2 MG, DAILY
     Route: 048
     Dates: start: 20111206
  3. FLUITRAN [TRICHLORMETHIAZIDE] [Concomitant]
     Active Substance: TRICHLORMETHIAZIDE
     Indication: HYPERTENSION
     Dosage: 1 MG, DAILY
     Route: 048
     Dates: start: 20111206
  4. CYRAMZA [Suspect]
     Active Substance: RAMUCIRUMAB
     Indication: LUNG ADENOCARCINOMA
     Dosage: 470 MG, CYCLICAL
     Route: 041
     Dates: start: 20200206, end: 20210308
  5. G LASTA [Concomitant]
     Active Substance: PEGFILGRASTIM
     Indication: LUNG ADENOCARCINOMA
     Dosage: 36 MG, DAILY
     Route: 058
     Dates: start: 20200208, end: 20200217
  6. DOCETAXEL. [Concomitant]
     Active Substance: DOCETAXEL
     Indication: LUNG ADENOCARCINOMA
     Dosage: 80 MG, CYCLICAL
     Route: 041
     Dates: start: 20200206, end: 20210308
  7. URSODEOXYCHOLIC ACID [Concomitant]
     Active Substance: URSODIOL
     Indication: CHOLELITHIASIS
     Dosage: 600 MG, DAILY
     Dates: start: 20191218
  8. THIATON [Concomitant]
     Active Substance: TIQUIZIUM BROMIDE
     Indication: CHOLELITHIASIS
     Dosage: 30 MG, DAILY
     Route: 048
     Dates: start: 20191218
  9. OLMESARTAN [Concomitant]
     Active Substance: OLMESARTAN
     Indication: HYPERTENSION
     Dosage: 20 MG, DAILY
     Route: 048
     Dates: start: 20111206

REACTIONS (1)
  - Pneumothorax [Recovered/Resolved]

NARRATIVE: CASE EVENT DATE: 20210309
